FAERS Safety Report 21948028 (Version 2)
Quarter: 2023Q1

REPORT INFORMATION
  Report Type: Spontaneous
  Country: FR (occurrence: FR)
  Receive Date: 20230203
  Receipt Date: 20230213
  Transmission Date: 20230417
  Serious: Yes (Death, Other)
  Sender: FDA-Public Use
  Company Number: FR-BRISTOL-MYERS SQUIBB COMPANY-2023-016112

PATIENT
  Age: 88 Year
  Sex: Male
  Weight: 75 kg

DRUGS (1)
  1. OPDIVO [Suspect]
     Active Substance: NIVOLUMAB
     Indication: Pleural mesothelioma malignant
     Route: 042
     Dates: start: 20220505

REACTIONS (2)
  - Malignant neoplasm progression [Fatal]
  - Off label use [Unknown]
